APPROVED DRUG PRODUCT: LOTEPREDNOL ETABONATE
Active Ingredient: LOTEPREDNOL ETABONATE
Strength: 0.5%
Dosage Form/Route: GEL;OPHTHALMIC
Application: A213956 | Product #001
Applicant: HIKMA PHARMACEUTICALS USA INC
Approved: Nov 29, 2023 | RLD: No | RS: No | Type: DISCN